FAERS Safety Report 5266115-3 (Version None)
Quarter: 2007Q1

REPORT INFORMATION
  Report Type: 
  Country: None (occurrence: None)
  Receive Date: 20070313
  Receipt Date: 20070313
  Transmission Date: 20070707
  Serious: Yes (Hospitalization)
  Sender: FDA-Public Use
  Company Number: None

PATIENT
  Age: 64 Year
  Sex: Male
  Weight: 44 kg

DRUGS (4)
  1. RITIXUMAB 375MG/M2 IVPB IN 500MLD5 W DAY1 OF 21 DAY CYCLE [Suspect]
     Indication: DIFFUSE LARGE B-CELL LYMPHOMA
     Dosage: 375MG/M2 IVPB IN 500MLD5W DAY 1 OF 21 DAY CYCLE
  2. CYCLOPHOSPHAMIDE [Suspect]
     Dosage: 750MG/M2 IVPB IN 100ML NS DAY 1 OF 21
  3. DOXORUBICIN 50MG/M2 IVP DAY 1 OF 21 [Suspect]
     Dosage: 50MG/M2 IVP DAY 1 OF 21
  4. VINCRISTINE [Suspect]
     Dosage: 2MG IVP DAY 1 OF 21

REACTIONS (4)
  - ANOREXIA [None]
  - DIARRHOEA [None]
  - FEBRILE NEUTROPENIA [None]
  - NAUSEA [None]
